FAERS Safety Report 20491740 (Version 2)
Quarter: 2022Q1

REPORT INFORMATION
  Report Type: Spontaneous
  Country: US (occurrence: US)
  Receive Date: 20220218
  Receipt Date: 20220315
  Transmission Date: 20220424
  Serious: No
  Sender: FDA-Public Use
  Company Number: US-PFIZER INC-202200066104

PATIENT
  Age: 61 Year
  Sex: Female

DRUGS (6)
  1. IBRANCE [Suspect]
     Active Substance: PALBOCICLIB
     Dosage: DAILY ON DAYS 1-21 EVERY 28 DAY CYCLE)
     Route: 048
     Dates: start: 20211018
  2. LETROZOLE [Concomitant]
     Active Substance: LETROZOLE
  3. PROCHLORPERAZINE [Concomitant]
     Active Substance: PROCHLORPERAZINE
  4. MELOXICAM [Concomitant]
     Active Substance: MELOXICAM
  5. AMLODIPINE BESYLATE [Concomitant]
     Active Substance: AMLODIPINE BESYLATE
  6. PAU D^ARCO [TABEBUIA IMPETIGINOSA] [Concomitant]

REACTIONS (10)
  - Headache [Unknown]
  - Dizziness [Unknown]
  - Nausea [Unknown]
  - Somnolence [Unknown]
  - Weight increased [Unknown]
  - Arthralgia [Unknown]
  - Oral pain [Unknown]
  - Gingival bleeding [Unknown]
  - Gingival pain [Unknown]
  - Fatigue [Unknown]
